FAERS Safety Report 11444831 (Version 2)
Quarter: 2015Q4

REPORT INFORMATION
  Report Type: Spontaneous
  Country: US (occurrence: US)
  Receive Date: 20150902
  Receipt Date: 20151119
  Transmission Date: 20160304
  Serious: No
  Sender: FDA-Public Use
  Company Number: US-009507513-1508USA013732

PATIENT
  Age: 26 Year
  Sex: Female
  Weight: 93 kg

DRUGS (2)
  1. DIFICID [Suspect]
     Active Substance: FIDAXOMICIN
     Dosage: SECOND ROUND OF THERAPY WITH THE TAPERED DOSING
     Route: 048
     Dates: start: 2015, end: 20150818
  2. DIFICID [Suspect]
     Active Substance: FIDAXOMICIN
     Indication: CLOSTRIDIUM DIFFICILE INFECTION
     Dosage: FIRST ROUND OF THERAPY ON THE STANDARD DOSING
     Route: 048
     Dates: start: 20150323, end: 2015

REACTIONS (3)
  - Graft versus host disease [Recovered/Resolved]
  - Clostridium test positive [Unknown]
  - Treatment failure [Unknown]

NARRATIVE: CASE EVENT DATE: 2015
